FAERS Safety Report 7308591-8 (Version None)
Quarter: 2011Q1

REPORT INFORMATION
  Report Type: 
  Country: None (occurrence: None)
  Receive Date: 20110211
  Receipt Date: 20110201
  Transmission Date: 20110831
  Serious: Yes (Life-Threatening, Hospitalization, Other)
  Sender: FDA-Public Use
  Company Number: 2011MA001012

PATIENT
  Age: 17 Year
  Sex: Male

DRUGS (3)
  1. CEPHALEXIN [Concomitant]
  2. PREV MEDS [Concomitant]
  3. MIRTAZAPINE [Suspect]
     Indication: DEPRESSED MOOD
     Dosage: 30 MG;PO
     Route: 048

REACTIONS (1)
  - SUICIDE ATTEMPT [None]
